FAERS Safety Report 4894734-2 (Version None)
Quarter: 2006Q1

REPORT INFORMATION
  Report Type: 
  Country: None (occurrence: None)
  Receive Date: 20060127
  Receipt Date: 20060127
  Transmission Date: 20060701
  Serious: Yes (Other)
  Sender: FDA-Public Use
  Company Number: None

PATIENT
  Age: 44 Year
  Sex: Male
  Weight: 66 kg

DRUGS (1)
  1. HEPARIN [Suspect]
     Indication: THROMBOSIS PROPHYLAXIS
     Dosage: 5000 UNITS   Q 8 HOURS  SQ
     Route: 058
     Dates: start: 20051115, end: 20051222

REACTIONS (4)
  - BLISTER [None]
  - BURNING SENSATION [None]
  - OEDEMA PERIPHERAL [None]
  - PRURITUS [None]
